FAERS Safety Report 4283624-4 (Version None)
Quarter: 2004Q1

REPORT INFORMATION
  Report Type: 
  Country: None (occurrence: None)
  Receive Date: 20040129
  Receipt Date: 20040129
  Transmission Date: 20041129
  Serious: Yes (Hospitalization)
  Sender: FDA-Public Use
  Company Number: None

PATIENT
  Age: 89 Year
  Sex: Female
  Weight: 64.2 kg

DRUGS (6)
  1. PHENYTOIN [Suspect]
     Indication: CONVULSION
     Dosage: 150 MG PO BID, CHRONIC
     Route: 048
  2. ATIVAN [Suspect]
     Dosage: 1 MG IV X 2 DOSES
     Route: 042
     Dates: start: 20031011
  3. IMDUR [Concomitant]
  4. ENALAPRIL MALEATE [Concomitant]
  5. PROTONIX [Concomitant]
  6. IRON [Concomitant]

REACTIONS (5)
  - CEREBROVASCULAR ACCIDENT [None]
  - CONVULSION [None]
  - GENERAL NUTRITION DISORDER [None]
  - MENTAL STATUS CHANGES [None]
  - SEDATION [None]
